FAERS Safety Report 5129437-2 (Version None)
Quarter: 2006Q4

REPORT INFORMATION
  Report Type: 
  Country: None (occurrence: None)
  Receive Date: 20061018
  Receipt Date: 20061009
  Transmission Date: 20070319
  Serious: Yes (Disabling, Other)
  Sender: FDA-Public Use
  Company Number: GB-JNJFOC-20061002209

PATIENT
  Age: 80 Year
  Sex: Female
  Weight: 62 kg

DRUGS (10)
  1. REMICADE [Suspect]
     Indication: RHEUMATOID ARTHRITIS
     Route: 042
  2. BISOPROLOL FUMARATE [Concomitant]
     Route: 048
  3. CALCICHEW D3 [Concomitant]
     Route: 048
  4. EZETIMIBE [Concomitant]
     Route: 048
  5. LANSOPRAZOLE [Concomitant]
     Route: 048
  6. PREDNISOLONE [Concomitant]
     Indication: RHEUMATOID ARTHRITIS
     Route: 048
  7. RAMIPRIL [Concomitant]
     Route: 048
  8. RISEDRONATE SODIUM [Concomitant]
     Indication: OSTEOPOROSIS
     Route: 048
  9. ROSUVASTATIN [Concomitant]
     Route: 048
  10. WARFARIN SODIUM [Concomitant]
     Route: 048

REACTIONS (2)
  - ECZEMA ASTEATOTIC [None]
  - RASH [None]
